FAERS Safety Report 5257027-X (Version None)
Quarter: 2007Q1

REPORT INFORMATION
  Report Type: 
  Country: None (occurrence: None)
  Receive Date: 20070307
  Receipt Date: 20070226
  Transmission Date: 20070707
  Serious: Yes (Other)
  Sender: FDA-Public Use
  Company Number: 2007AC00360

PATIENT
  Age: 36 Year
  Sex: Female

DRUGS (18)
  1. QUETIAPINE FUMARATE [Interacting]
     Indication: SCHIZOPHRENIA
     Route: 048
  2. QUETIAPINE FUMARATE [Interacting]
     Indication: PSYCHOTIC DISORDER
     Route: 048
  3. QUETIAPINE FUMARATE [Interacting]
     Route: 048
  4. SEMISODIUM VALPROATE [Interacting]
     Indication: AGITATION
  5. SEMISODIUM VALPROATE [Interacting]
     Indication: DELUSION OF GRANDEUR
  6. SEMISODIUM VALPROATE [Interacting]
     Indication: HALLUCINATION
  7. CLOZAPINE [Suspect]
     Indication: SCHIZOPHRENIA
  8. CLOZAPINE [Suspect]
     Indication: PSYCHOTIC DISORDER
  9. CLOZAPINE [Suspect]
  10. CLOZAPINE [Suspect]
  11. OLANZAPINE [Concomitant]
     Indication: SCHIZOPHRENIA
     Dosage: COMBINED WITH SEMISODIUM VALPROATE
  12. OLANZAPINE [Concomitant]
     Indication: PSYCHOTIC DISORDER
     Dosage: COMBINED WITH SEMISODIUM VALPROATE
  13. ARIPIPRAZOLE [Concomitant]
     Indication: SCHIZOPHRENIA
     Dosage: COMBINED WITH SEMISODIUM VALPROATE
  14. ARIPIPRAZOLE [Concomitant]
     Indication: PSYCHOTIC DISORDER
     Dosage: COMBINED WITH SEMISODIUM VALPROATE
  15. LITHIUM CARBONATE [Concomitant]
  16. LITHIUM CARBONATE [Concomitant]
  17. ZUCLOPENTHIXOL [Concomitant]
  18. SULPIRIDE [Concomitant]

REACTIONS (3)
  - DRUG INTERACTION [None]
  - LEUKOPENIA [None]
  - NEUTROPENIA [None]
